FAERS Safety Report 8156313-3 (Version None)
Quarter: 2012Q1

REPORT INFORMATION
  Report Type: 
  Country: None (occurrence: None)
  Receive Date: 20120222
  Receipt Date: 20110616
  Transmission Date: 20120608
  Serious: No
  Sender: FDA-Public Use
  Company Number: US-BRISTOL-MYERS SQUIBB COMPANY-15838303

PATIENT
  Sex: Male

DRUGS (1)
  1. KENALOG [Suspect]
     Dates: start: 20110501

REACTIONS (3)
  - INJECTION SITE ATROPHY [None]
  - ACNE [None]
  - DEPRESSION [None]
